FAERS Safety Report 4742313-X (Version None)
Quarter: 2005Q3

REPORT INFORMATION
  Report Type: 
  Country: None (occurrence: None)
  Receive Date: 20050811
  Receipt Date: 20050405
  Transmission Date: 20060218
  Serious: No
  Sender: FDA-Public Use
  Company Number: US-GLAXOSMITHKLINE-A0552813A

PATIENT
  Sex: Female

DRUGS (1)
  1. PAXIL CR [Suspect]

REACTIONS (1)
  - FEELING JITTERY [None]
